FAERS Safety Report 7242536-4 (Version None)
Quarter: 2010Q4

REPORT INFORMATION
  Report Type: 
  Country: None (occurrence: None)
  Receive Date: 20101130
  Receipt Date: 20091019
  Transmission Date: 20110411
  Serious: Yes (Hospitalization)
  Sender: FDA-Public Use
  Company Number: 2009-200093-NL

PATIENT
  Age: 26 Year
  Sex: Female
  Weight: 66.2252 kg

DRUGS (2)
  1. NUVARING [Suspect]
     Indication: CONTRACEPTION
     Dosage: 1 DF
     Dates: start: 20040329, end: 20040712
  2. ORTHO EVRA [Concomitant]

REACTIONS (3)
  - DEEP VEIN THROMBOSIS [None]
  - POST THROMBOTIC SYNDROME [None]
  - PULMONARY EMBOLISM [None]
